FAERS Safety Report 22071698 (Version 1)
Quarter: 2023Q1

REPORT INFORMATION
  Report Type: Spontaneous
  Country: CN (occurrence: CN)
  Receive Date: 20230307
  Receipt Date: 20230307
  Transmission Date: 20230417
  Serious: Yes (Other)
  Sender: FDA-Public Use
  Company Number: CN-TAKEDA-2023TUS021417

PATIENT
  Sex: Male
  Weight: 70 kg

DRUGS (2)
  1. ADCETRIS [Suspect]
     Active Substance: BRENTUXIMAB VEDOTIN
     Indication: Hodgkin^s disease nodular sclerosis
     Dosage: 15 MILLIGRAM, QD
     Route: 041
     Dates: start: 20230224, end: 20230224
  2. CAMRELIZUMAB [Suspect]
     Active Substance: CAMRELIZUMAB
     Indication: Hodgkin^s disease nodular sclerosis
     Dosage: 200 MILLIGRAM, QD
     Route: 041
     Dates: start: 20230224, end: 20230224

REACTIONS (3)
  - Tongue oedema [Recovering/Resolving]
  - Rash erythematous [Recovering/Resolving]
  - Pruritus [Recovering/Resolving]
